FAERS Safety Report 5636416-5 (Version None)
Quarter: 2008Q1

REPORT INFORMATION
  Report Type: 
  Country: None (occurrence: None)
  Receive Date: 20080225
  Receipt Date: 20071221
  Transmission Date: 20080703
  Serious: No
  Sender: FDA-Public Use
  Company Number: A0700298A

PATIENT

DRUGS (2)
  1. VERAMYST [Suspect]
     Indication: DRUG USE FOR UNKNOWN INDICATION
     Route: 045
     Dates: start: 20071101
  2. NO CONCURRENT MEDICATION [Concomitant]

REACTIONS (1)
  - MIGRAINE [None]
